FAERS Safety Report 7644659-4 (Version None)
Quarter: 2011Q3

REPORT INFORMATION
  Report Type: 
  Country: None (occurrence: None)
  Receive Date: 20110725
  Receipt Date: 20110711
  Transmission Date: 20111222
  Serious: Yes (Other)
  Sender: FDA-Public Use
  Company Number: IT-1187103

PATIENT
  Age: 35 Year
  Sex: Female

DRUGS (3)
  1. TOBRADEX [Suspect]
     Indication: CHALAZION
     Dosage: (OPHTHALMIC)
     Route: 047
     Dates: start: 20110516, end: 20110516
  2. AUGMENTIN '125' [Suspect]
     Indication: TONSILLAR DISORDER
     Dosage: (1000 MG QD ORAL)
     Route: 048
     Dates: start: 20110516, end: 20110516
  3. RINOFLUIMUCIL NASAL SPRAY (RINOFLUIMUCIL 1% + 0.5% NASAL SPRAY 10 ML) [Suspect]
     Indication: TONSILLAR DISORDER
     Dosage: (2 POSOLOGIC UNITS NASAL)
     Route: 045
     Dates: start: 20110516, end: 20110516

REACTIONS (3)
  - FEELING HOT [None]
  - RASH [None]
  - PRURITUS [None]
